FAERS Safety Report 16073335 (Version 1)
Quarter: 2019Q1

REPORT INFORMATION
  Report Type: Spontaneous
  Country: US (occurrence: US)
  Receive Date: 20190314
  Receipt Date: 20190314
  Transmission Date: 20190418
  Serious: No
  Sender: FDA-Public Use
  Company Number: US-BAYER-2019-051563

PATIENT
  Age: 17 Year
  Sex: Male

DRUGS (3)
  1. ALKA-SELTZER HEARTBURN RELIEFCHEWS [Suspect]
     Active Substance: CALCIUM CARBONATE
     Dosage: UNK
     Route: 048
  2. MIRALAX [Suspect]
     Active Substance: POLYETHYLENE GLYCOL 3350
     Indication: GASTROINTESTINAL DISORDER
     Route: 048
  3. ONE A DAY 50 PLUS [Suspect]
     Active Substance: VITAMINS

REACTIONS (3)
  - Therapeutic response unexpected [Unknown]
  - Abdominal discomfort [Unknown]
  - Somnolence [Unknown]
